FAERS Safety Report 5833375-7 (Version None)
Quarter: 2008Q3

REPORT INFORMATION
  Report Type: 
  Country: None (occurrence: None)
  Receive Date: 20080805
  Receipt Date: 20080729
  Transmission Date: 20090109
  Serious: Yes (Death)
  Sender: FDA-Public Use
  Company Number: PHHY2008JP08009

PATIENT
  Sex: Male
  Weight: 69 kg

DRUGS (13)
  1. SANDOSTATIN [Suspect]
     Indication: ACROMEGALY
     Dosage: 200 UG, QD
     Route: 058
     Dates: start: 20030314, end: 20030719
  2. SANDOSTATIN [Suspect]
     Dosage: 300 UG, QD
     Route: 058
     Dates: start: 20030720, end: 20050217
  3. SANDOSTATIN LAR [Suspect]
     Indication: ACROMEGALY
     Dosage: UNK
     Route: 030
     Dates: start: 20050218, end: 20060612
  4. HUMACART [Concomitant]
     Indication: DIABETES MELLITUS
     Dosage: 16 DF
     Route: 058
     Dates: start: 19970101, end: 20060805
  5. THYRADIN [Concomitant]
     Indication: HYPOPARATHYROIDISM
     Dosage: UNK
     Route: 048
     Dates: start: 20030314, end: 20060802
  6. THYRADIN [Concomitant]
     Dosage: 150 MICROGRAMS
     Route: 048
     Dates: start: 20030314, end: 20060802
  7. THYRADIN [Concomitant]
     Dosage: 125 MICROGRAMS
     Route: 048
     Dates: start: 20030314, end: 20060802
  8. PRAVASTATIN [Concomitant]
     Indication: LIPIDS ABNORMAL
     Dosage: 10 MG
     Route: 048
     Dates: start: 20030226, end: 20060705
  9. GASTER [Concomitant]
     Indication: GASTRIC ULCER
     Dosage: 20 G
     Route: 048
     Dates: start: 19900101, end: 20050705
  10. SELBEX [Concomitant]
     Indication: GASTRIC ULCER
     Dosage: 150 G
     Route: 048
     Dates: start: 19900101, end: 20060705
  11. MAGNESIUM OXIDE [Concomitant]
     Indication: CONSTIPATION
     Dosage: 2 G
     Route: 048
     Dates: start: 19900101, end: 20060705
  12. GASMOTIN [Concomitant]
     Indication: CONSTIPATION
     Dosage: 15 G
     Route: 048
     Dates: start: 20050904, end: 20060705
  13. BLOOD TRANSFUSION, AUXILIARY PRODUCTS [Concomitant]

REACTIONS (33)
  - ACTIVATED PARTIAL THROMBOPLASTIN TIME PROLONGED [None]
  - ADENOCARCINOMA [None]
  - ALANINE AMINOTRANSFERASE INCREASED [None]
  - ANTIMICROBIAL SUSCEPTIBILITY TEST RESISTANT [None]
  - ASPARTATE AMINOTRANSFERASE INCREASED [None]
  - BACK PAIN [None]
  - BLOOD ALKALINE PHOSPHATASE INCREASED [None]
  - BLOOD LACTATE DEHYDROGENASE INCREASED [None]
  - BLOOD POTASSIUM INCREASED [None]
  - BLOOD SODIUM DECREASED [None]
  - BLOOD UREA INCREASED [None]
  - BODY TEMPERATURE INCREASED [None]
  - C-REACTIVE PROTEIN INCREASED [None]
  - CHROMATURIA [None]
  - DECREASED APPETITE [None]
  - DEPRESSED LEVEL OF CONSCIOUSNESS [None]
  - DISSEMINATED INTRAVASCULAR COAGULATION [None]
  - FIBRIN DEGRADATION PRODUCTS INCREASED [None]
  - FIBROSIS [None]
  - GASTRIC CANCER [None]
  - HAEMOGLOBIN DECREASED [None]
  - HEART RATE DECREASED [None]
  - HYPOTHALAMO-PITUITARY DISORDER [None]
  - ILEUS [None]
  - INTERNATIONAL NORMALISED RATIO DECREASED [None]
  - INTESTINAL OBSTRUCTION [None]
  - OXYGEN SATURATION DECREASED [None]
  - PLATELET COUNT DECREASED [None]
  - PLEURAL EFFUSION [None]
  - RESPIRATION ABNORMAL [None]
  - STAPHYLOCOCCAL INFECTION [None]
  - SURGERY [None]
  - WHITE BLOOD CELL COUNT INCREASED [None]
